FAERS Safety Report 18070255 (Version 1)
Quarter: 2020Q3

REPORT INFORMATION
  Report Type: Spontaneous
  Country: US (occurrence: US)
  Receive Date: 20200727
  Receipt Date: 20200727
  Transmission Date: 20201103
  Serious: Yes (Hospitalization)
  Sender: FDA-Public Use
  Company Number: US-CADILA HEALTHCARE LIMITED-US-ZYDUS-053871

PATIENT

DRUGS (4)
  1. AZITHROMYCIN ANHYDROUS. [Concomitant]
     Active Substance: AZITHROMYCIN ANHYDROUS
     Indication: OROPHARYNGEAL PAIN
     Dosage: UNK
  2. METRONIDAZOLE. [Suspect]
     Active Substance: METRONIDAZOLE
     Indication: BACTERIAL VAGINOSIS
     Dosage: 500 MILLIGRAM, TID
     Route: 048
  3. IBUPROFEN. [Concomitant]
     Active Substance: IBUPROFEN
     Indication: MYALGIA
     Dosage: UNK
  4. METRONIDAZOLE. [Suspect]
     Active Substance: METRONIDAZOLE
     Dosage: 500 MILLIGRAM (ONE DOSE)
     Route: 042

REACTIONS (1)
  - Aplastic anaemia [Recovering/Resolving]
